FAERS Safety Report 8002918-X (Version None)
Quarter: 2011Q4

REPORT INFORMATION
  Report Type: 
  Country: None (occurrence: None)
  Receive Date: 20111222
  Receipt Date: 20110323
  Transmission Date: 20120403
  Serious: No
  Sender: FDA-Public Use
  Company Number: US-GLAXOSMITHKLINE-A0919552A

PATIENT
  Age: 63 Year
  Sex: Male

DRUGS (8)
  1. ALLEGRA [Concomitant]
  2. OMEPRAZOLE [Concomitant]
  3. LANTUS [Concomitant]
  4. AVODART [Suspect]
     Indication: BENIGN PROSTATIC HYPERPLASIA
     Route: 048
     Dates: start: 20100625, end: 20110306
  5. HUMALOG [Concomitant]
  6. SUCRALFATE [Concomitant]
  7. METOPROLOL TARTRATE [Concomitant]
  8. DIOVAN [Concomitant]

REACTIONS (4)
  - MUSCLE SPASMS [None]
  - JOINT STIFFNESS [None]
  - MUSCLE TWITCHING [None]
  - MUSCLE TIGHTNESS [None]
